FAERS Safety Report 18355418 (Version 1)
Quarter: 2020Q4

REPORT INFORMATION
  Report Type: Spontaneous
  Country: US (occurrence: US)
  Receive Date: 20201006
  Receipt Date: 20201006
  Transmission Date: 20210114
  Serious: Yes (Hospitalization, Other)
  Sender: FDA-Public Use
  Company Number: None

PATIENT
  Age: 54 Year
  Sex: Female

DRUGS (4)
  1. HUMIRA [Suspect]
     Active Substance: ADALIMUMAB
     Indication: ANKYLOSING SPONDYLITIS
     Route: 058
     Dates: start: 20200206
  2. FOLIC ACID. [Concomitant]
     Active Substance: FOLIC ACID
  3. DICLOFENAC [Concomitant]
     Active Substance: DICLOFENAC
  4. METHOTREXATE. [Concomitant]
     Active Substance: METHOTREXATE

REACTIONS (2)
  - Therapy interrupted [None]
  - Road traffic accident [None]

NARRATIVE: CASE EVENT DATE: 20200918
